FAERS Safety Report 17949514 (Version 1)
Quarter: 2020Q2

REPORT INFORMATION
  Report Type: Spontaneous
  Country: CZ (occurrence: CZ)
  Receive Date: 20200626
  Receipt Date: 20200626
  Transmission Date: 20200714
  Serious: Yes (Death, Hospitalization)
  Sender: FDA-Public Use
  Company Number: CZ-B.I. PHARMACEUTICALS,INC./RIDGEFIELD-2020-BI-031506

PATIENT
  Age: 90 Year
  Sex: Female

DRUGS (1)
  1. PRAXBIND [Suspect]
     Active Substance: IDARUCIZUMAB
     Indication: PROCOAGULANT THERAPY
     Route: 042
     Dates: start: 20200615, end: 20200615

REACTIONS (3)
  - Hepatic cyst [Fatal]
  - Sepsis [Fatal]
  - Hypovolaemia [Fatal]

NARRATIVE: CASE EVENT DATE: 20200615
